FAERS Safety Report 25700173 (Version 1)
Quarter: 2025Q3

REPORT INFORMATION
  Report Type: Spontaneous
  Country: US (occurrence: None)
  Receive Date: 20250818
  Receipt Date: 20250818
  Transmission Date: 20251021
  Serious: Yes (Hospitalization)
  Sender: FDA-CTU
  Company Number: None

PATIENT
  Sex: Male

DRUGS (11)
  1. LENALIDOMIDE [Suspect]
     Active Substance: LENALIDOMIDE
     Indication: Neoplasm malignant
     Route: 048
     Dates: start: 20250718
  2. ANORO ELLIPT AER 62.5-25 [Concomitant]
  3. ARANESP INJ 100MCG [Concomitant]
  4. ASPIRIN [Concomitant]
     Active Substance: ASPIRIN
  5. ATORVASTATIN TAB 10MG [Concomitant]
  6. CALCITRIOL CAP 0.5MCG [Concomitant]
  7. CARVEDI LOL TAB 12.5MG [Concomitant]
  8. DEXAMETHASONE [Concomitant]
     Active Substance: DEXAMETHASONE
  9. ELIQUIS [Concomitant]
     Active Substance: APIXABAN
  10. EMLA CRE 2.5-2.5% [Concomitant]
  11. FOLIC ACID TAB 1MG [Concomitant]

REACTIONS (1)
  - Surgery [None]
